FAERS Safety Report 24063747 (Version 2)
Quarter: 2024Q3

REPORT INFORMATION
  Report Type: Spontaneous
  Country: US (occurrence: None)
  Receive Date: 20240709
  Receipt Date: 20240723
  Transmission Date: 20241017
  Serious: No
  Sender: BANNER
  Company Number: US-PTA-005618

PATIENT

DRUGS (1)
  1. ALEVE [Suspect]
     Active Substance: NAPROXEN SODIUM
     Indication: Back pain
     Route: 048

REACTIONS (1)
  - Drug ineffective [Unknown]
